FAERS Safety Report 16979778 (Version 1)
Quarter: 2019Q4

REPORT INFORMATION
  Report Type: Spontaneous
  Country: DK (occurrence: DK)
  Receive Date: 20191031
  Receipt Date: 20191031
  Transmission Date: 20200122
  Serious: Yes (Hospitalization, Congenital Anomaly, Other)
  Sender: FDA-Public Use
  Company Number: DK-GLAXOSMITHKLINE-DK2019194074

PATIENT
  Age: 9 Year
  Sex: Male

DRUGS (1)
  1. LAMICTAL [Suspect]
     Active Substance: LAMOTRIGINE
     Indication: EPILEPSY
     Dosage: DOSAGE: VARYING THROUGHOUT PREGNANCY
     Route: 064
     Dates: start: 2009, end: 20100520

REACTIONS (2)
  - Foetal exposure during pregnancy [Unknown]
  - Autism spectrum disorder [Not Recovered/Not Resolved]
